FAERS Safety Report 5935658-9 (Version None)
Quarter: 2008Q4

REPORT INFORMATION
  Report Type: 
  Country: None (occurrence: None)
  Receive Date: 20081021
  Receipt Date: 20080423
  Transmission Date: 20090506
  Serious: Yes (Hospitalization, Other)
  Sender: FDA-Public Use
  Company Number: 2008S1007085

PATIENT
  Age: 86 Year
  Sex: Female
  Weight: 50 kg

DRUGS (4)
  1. ENALAPRIL MALEATE [Suspect]
     Indication: HYPERTENSION
  2. AMLODIPINE [Concomitant]
  3. ATENOLOL [Concomitant]
  4. ASPIRIN [Concomitant]

REACTIONS (1)
  - HYPONATRAEMIA [None]
